FAERS Safety Report 6759098-8 (Version None)
Quarter: 2010Q2

REPORT INFORMATION
  Report Type: 
  Country: None (occurrence: None)
  Receive Date: 20100607
  Receipt Date: 20100531
  Transmission Date: 20101027
  Serious: Yes (Death, Hospitalization)
  Sender: FDA-Public Use
  Company Number: PHHY2008CA17991

PATIENT
  Sex: Female

DRUGS (1)
  1. ZOMETA [Suspect]
     Indication: METASTATIC CARCINOID TUMOUR
     Dosage: 4 MG EVERY 4 WEEKS
     Route: 042
     Dates: start: 20080805

REACTIONS (3)
  - DEATH [None]
  - STENT PLACEMENT [None]
  - SURGERY [None]
